FAERS Safety Report 12726078 (Version 2)
Quarter: 2016Q3

REPORT INFORMATION
  Report Type: Spontaneous
  Country: TW (occurrence: TW)
  Receive Date: 20160908
  Receipt Date: 20160915
  Transmission Date: 20161109
  Serious: Yes (Death, Hospitalization)
  Sender: FDA-Public Use
  Company Number: TW-MYLANLABS-2016M1037711

PATIENT

DRUGS (2)
  1. CLOZAPINE. [Suspect]
     Active Substance: CLOZAPINE
     Indication: SCHIZOPHRENIA
     Dosage: 300 MG, QD
  2. CLOZAPINE. [Suspect]
     Active Substance: CLOZAPINE
     Dosage: 3000 MG, UNK
     Route: 065

REACTIONS (19)
  - Urinary incontinence [Unknown]
  - Rhabdomyolysis [Fatal]
  - Shock [Fatal]
  - Pneumothorax [Unknown]
  - Secretion discharge [Unknown]
  - Salivary hypersecretion [Unknown]
  - Coma [Fatal]
  - Completed suicide [Fatal]
  - Restlessness [Unknown]
  - Pulmonary oedema [Unknown]
  - Pyrexia [Unknown]
  - Hyperhidrosis [Unknown]
  - Leukocytosis [Unknown]
  - Haematuria [Unknown]
  - Toxicity to various agents [Fatal]
  - Neuroleptic malignant syndrome [Fatal]
  - Intentional overdose [Fatal]
  - Respiratory failure [Fatal]
  - Pleural effusion [Unknown]
